FAERS Safety Report 12816983 (Version 1)
Quarter: 2016Q4

REPORT INFORMATION
  Report Type: Spontaneous
  Country: US (occurrence: US)
  Receive Date: 20161005
  Receipt Date: 20161005
  Transmission Date: 20170207
  Serious: No
  Sender: FDA-Public Use
  Company Number: None

PATIENT
  Age: 44 Year
  Sex: Male
  Weight: 65.7 kg

DRUGS (5)
  1. LEVOFLOXACIN 500 MG [Suspect]
     Active Substance: LEVOFLOXACIN
     Indication: EPIDIDYMITIS
     Dosage: DAILY ORAL
     Route: 048
     Dates: start: 20160927, end: 20161001
  2. PROBIOTIC [Concomitant]
     Active Substance: PROBIOTICS NOS
  3. METAMUCIL (PSYLLIUM HUSK FIBER SUPPLEMENT) [Concomitant]
  4. MULTIVITAMIN [Concomitant]
     Active Substance: VITAMINS
  5. HYOSCYAMINE. [Concomitant]
     Active Substance: HYOSCYAMINE

REACTIONS (6)
  - Arthralgia [None]
  - Muscle spasms [None]
  - Urinary tract inflammation [None]
  - Musculoskeletal stiffness [None]
  - Back pain [None]
  - Asthenia [None]

NARRATIVE: CASE EVENT DATE: 20160929
